FAERS Safety Report 5820067-3 (Version None)
Quarter: 2008Q3

REPORT INFORMATION
  Report Type: 
  Country: None (occurrence: None)
  Receive Date: 20080724
  Receipt Date: 20080714
  Transmission Date: 20090109
  Serious: Yes (Hospitalization)
  Sender: FDA-Public Use
  Company Number: US-JNJFOC-20080106569

PATIENT
  Sex: Male
  Weight: 132.81 kg

DRUGS (8)
  1. REMICADE [Suspect]
     Indication: COLITIS ULCERATIVE
     Route: 042
  2. CYMBALTA [Concomitant]
  3. PREDNISONE TAB [Concomitant]
  4. TOPROL-XL [Concomitant]
  5. PRAVACHOL [Concomitant]
  6. NEXIUM [Concomitant]
  7. CLARITIN [Concomitant]
  8. COUMADIN [Concomitant]

REACTIONS (4)
  - ANGIOEDEMA [None]
  - DEEP VEIN THROMBOSIS [None]
  - DYSPHAGIA [None]
  - MYALGIA [None]
